FAERS Safety Report 9276898 (Version 2)
Quarter: 2013Q2

REPORT INFORMATION
  Report Type: Spontaneous
  Country: AE (occurrence: AE)
  Receive Date: 20130507
  Receipt Date: 20130603
  Transmission Date: 20140414
  Serious: Yes (Other)
  Sender: FDA-Public Use
  Company Number: AE-PFIZER INC-2013127819

PATIENT
  Sex: 0

DRUGS (6)
  1. ZELDOX [Suspect]
     Indication: DEPRESSION
     Dosage: 80 MG, IN THE EVENING
     Dates: start: 201201, end: 20130501
  2. ZELDOX [Suspect]
     Indication: ANXIETY
  3. ZELDOX [Suspect]
     Indication: OBSESSIVE-COMPULSIVE DISORDER
  4. FAVERIN [Concomitant]
     Indication: DEPRESSION
     Dosage: 300 MG, UNK
     Dates: start: 201201, end: 20130501
  5. FAVERIN [Concomitant]
     Indication: ANXIETY
  6. FAVERIN [Concomitant]
     Indication: OBSESSIVE-COMPULSIVE DISORDER

REACTIONS (3)
  - Off label use [Recovered/Resolved]
  - Photosensitivity reaction [Not Recovered/Not Resolved]
  - Thermal burn [Not Recovered/Not Resolved]
